FAERS Safety Report 18979090 (Version 1)
Quarter: 2021Q1

REPORT INFORMATION
  Report Type: Spontaneous
  Country: JP (occurrence: JP)
  Receive Date: 20210308
  Receipt Date: 20210308
  Transmission Date: 20210420
  Serious: Yes (Other)
  Sender: FDA-Public Use
  Company Number: JP-GEHPL-DSJ-2012-21112AA

PATIENT

DRUGS (4)
  1. LIDOCAINE. [Concomitant]
     Active Substance: LIDOCAINE
     Indication: NERVE BLOCK
     Dosage: 3 ML
     Route: 050
  2. OMNIPAQUE [Suspect]
     Active Substance: IOHEXOL
     Indication: THROMBOANGIITIS OBLITERANS
  3. OMNIPAQUE [Suspect]
     Active Substance: IOHEXOL
     Indication: NERVE BLOCK
     Dosage: 3 ML, SINGLE
     Route: 050
  4. ETHANOL ABSOLUTE [Concomitant]
     Active Substance: ALCOHOL
     Indication: NERVE BLOCK
     Dosage: 3 ML
     Route: 050

REACTIONS (2)
  - Retrograde ejaculation [Recovered/Resolved]
  - Off label use [Recovered/Resolved]
